FAERS Safety Report 10110284 (Version 2)
Quarter: 2014Q2

REPORT INFORMATION
  Report Type: Report from Study
  Country: CA (occurrence: CA)
  Receive Date: 20140425
  Receipt Date: 20140507
  Transmission Date: 20141212
  Serious: Yes (Other)
  Sender: FDA-Public Use
  Company Number: CA-JNJFOC-20140416138

PATIENT
  Sex: Male
  Weight: 90 kg

DRUGS (10)
  1. REMICADE [Suspect]
     Indication: CROHN^S DISEASE
     Dosage: DOSE: ^ONCE EVERY 8^ (DURATION UNSPECIFIED)
     Route: 042
     Dates: start: 20060404
  2. PENTASA [Concomitant]
     Route: 065
  3. PREDNISOLONE [Concomitant]
     Route: 065
  4. RAMIPRIL [Concomitant]
     Route: 065
  5. PAROXETINE [Concomitant]
     Route: 065
  6. ROSUVASTATIN [Concomitant]
     Route: 065
  7. SPIRONOLACTONE [Concomitant]
     Route: 065
  8. ATROVENT [Concomitant]
     Dosage: DOSE: ONCE 4 (DURATION UNSPECIFIED)
     Route: 065
  9. VENTOLIN [Concomitant]
     Dosage: DOSE: EVERY 4 (DURATION UNSPECIFIED)
     Route: 065
  10. LASIX [Concomitant]
     Route: 065

REACTIONS (1)
  - Pulmonary oedema [Not Recovered/Not Resolved]
